FAERS Safety Report 8061353-9 (Version None)
Quarter: 2012Q1

REPORT INFORMATION
  Report Type: 
  Country: None (occurrence: None)
  Receive Date: 20120120
  Receipt Date: 20111014
  Transmission Date: 20120608
  Serious: Yes (Other)
  Sender: FDA-Public Use
  Company Number: US-ALLERGAN-1112657US

PATIENT
  Age: 65 Year
  Sex: Female

DRUGS (4)
  1. JOHNSON AND JOHNSON BABY SHAMPOO [Concomitant]
     Indication: THERAPEUTIC SKIN CARE TOPICAL
  2. NEURONTIN [Concomitant]
  3. RESTASIS [Suspect]
     Indication: DRY EYE
     Dosage: 2 GTT, BID
     Route: 047
     Dates: end: 20110917
  4. AMBIEN [Concomitant]

REACTIONS (1)
  - CONJUNCTIVAL NEOPLASM [None]
